FAERS Safety Report 26109413 (Version 2)
Quarter: 2025Q4

REPORT INFORMATION
  Report Type: Spontaneous
  Country: US (occurrence: US)
  Receive Date: 20251201
  Receipt Date: 20251221
  Transmission Date: 20260118
  Serious: Yes (Other)
  Sender: AMGEN
  Company Number: US-AMGEN-USASP2025231865

PATIENT
  Age: 62 Year
  Sex: Female

DRUGS (2)
  1. AVSOLA [Suspect]
     Active Substance: INFLIXIMAB-AXXQ
     Indication: Sarcoidosis
     Dosage: UNK, Q6WK
     Route: 040
  2. PREDNISONE [Suspect]
     Active Substance: PREDNISONE
     Indication: Product used for unknown indication
     Dosage: 20 MILLIGRAM, QD (THREE MONTHS BEFORE AVSOLA)
     Route: 065

REACTIONS (10)
  - Spondylolisthesis [Unknown]
  - Procedural pain [Not Recovered/Not Resolved]
  - Off label use [Unknown]
  - Swelling [Unknown]
  - Scab [Not Recovered/Not Resolved]
  - Cough [Not Recovered/Not Resolved]
  - Hand-foot-and-mouth disease [Unknown]
  - Lymphadenopathy [Unknown]
  - Headache [Unknown]
  - Dyspnoea [Unknown]

NARRATIVE: CASE EVENT DATE: 20250101
